FAERS Safety Report 19748638 (Version 3)
Quarter: 2022Q1

REPORT INFORMATION
  Report Type: Spontaneous
  Country: US (occurrence: None)
  Receive Date: 20210826
  Receipt Date: 20220131
  Transmission Date: 20220423
  Serious: No
  Sender: FDA-Public Use
  Company Number: US-MERCK HEALTHCARE KGAA-9259548

PATIENT
  Age: 61 Year
  Sex: Female

DRUGS (2)
  1. REBIF [Suspect]
     Active Substance: INTERFERON BETA-1A
     Indication: Multiple sclerosis
     Dosage: REBIF PREFILLED SYRINGE?REBI-JECT II/MANUAL
     Route: 058
     Dates: start: 20030214
  2. REBIF [Suspect]
     Active Substance: INTERFERON BETA-1A
     Dosage: REBIF PREFILLED SYRINGE?REBI-JECT II/MANUAL
     Route: 058
     Dates: start: 20160827

REACTIONS (7)
  - Influenza like illness [Recovered/Resolved]
  - Chills [Unknown]
  - Mental disorder [Unknown]
  - General physical health deterioration [Unknown]
  - Raynaud^s phenomenon [Unknown]
  - Condition aggravated [Recovered/Resolved]
  - Nasopharyngitis [Unknown]

NARRATIVE: CASE EVENT DATE: 20210809
